FAERS Safety Report 6249178-8 (Version None)
Quarter: 2009Q2

REPORT INFORMATION
  Report Type: 
  Country: None (occurrence: None)
  Receive Date: 20090624
  Receipt Date: 20090611
  Transmission Date: 20091009
  Serious: Yes (Hospitalization, Other)
  Sender: FDA-Public Use
  Company Number: 230102K08CAN

PATIENT
  Age: 62 Year
  Sex: Female

DRUGS (3)
  1. REBIF [Suspect]
     Dosage: 44 MCG, 2 IN 1 WEEKS
     Dates: start: 19961128
  2. FOSAMAX [Concomitant]
  3. ANTIBIOTIC (ANTIBIOTICS) [Concomitant]

REACTIONS (6)
  - CHOLELITHIASIS [None]
  - DYSURIA [None]
  - FLATULENCE [None]
  - GALLBLADDER CANCER [None]
  - METASTASES TO LYMPH NODES [None]
  - PAIN [None]
